FAERS Safety Report 10146827 (Version 1)
Quarter: 2014Q2

REPORT INFORMATION
  Report Type: Spontaneous
  Country: US (occurrence: None)
  Receive Date: 20140430
  Receipt Date: 20140430
  Transmission Date: 20141212
  Serious: Yes (Hospitalization)
  Sender: FDA-Public Use
  Company Number: None

PATIENT
  Age: 27 Year
  Sex: Male

DRUGS (6)
  1. INFLIXIMAB [Suspect]
     Indication: CROHN^S DISEASE
     Route: 042
     Dates: start: 20131119
  2. FERROUS SULFATE [Concomitant]
  3. FLUOXETINE [Concomitant]
  4. CYANOCOBALAMIN [Concomitant]
  5. OXYCODONE [Concomitant]
  6. TEMAZEPAM [Concomitant]

REACTIONS (5)
  - Pruritus [None]
  - Throat tightness [None]
  - Burning sensation [None]
  - Peripheral swelling [None]
  - Infusion related reaction [None]
